FAERS Safety Report 9697056 (Version 1)
Quarter: 2013Q4

REPORT INFORMATION
  Report Type: Spontaneous
  Country: NL (occurrence: NL)
  Receive Date: 20131120
  Receipt Date: 20131120
  Transmission Date: 20140711
  Serious: Yes (Other)
  Sender: FDA-Public Use
  Company Number: NL-PAR PHARMACEUTICAL, INC-2013SCPR007768

PATIENT
  Sex: 0

DRUGS (1)
  1. TRANYLCYPROMINE [Suspect]
     Indication: DEPRESSION
     Dosage: 10 MG, / DAY
     Route: 065

REACTIONS (4)
  - Cerebral vasoconstriction [Recovered/Resolved]
  - Herbal interaction [Recovered/Resolved]
  - Neck pain [Recovered/Resolved]
  - Musculoskeletal pain [Recovered/Resolved]
